FAERS Safety Report 5390102-8 (Version None)
Quarter: 2007Q3

REPORT INFORMATION
  Report Type: 
  Country: None (occurrence: None)
  Receive Date: 20070718
  Receipt Date: 20070711
  Transmission Date: 20080115
  Serious: Yes (Death, Hospitalization)
  Sender: FDA-Public Use
  Company Number: B0475441B

PATIENT
  Age: 57 Year
  Sex: Female
  Weight: 75 kg

DRUGS (5)
  1. LAPATINIB [Suspect]
     Indication: BREAST CANCER METASTATIC
     Dosage: 1250MG TWICE PER DAY
     Route: 048
     Dates: start: 20070403, end: 20070608
  2. CAPECITABINE [Suspect]
     Indication: BREAST CANCER METASTATIC
     Route: 048
     Dates: start: 20070403, end: 20070608
  3. NADROPARINE [Concomitant]
     Indication: THROMBOSIS
     Dosage: .8ML PER DAY
     Route: 058
     Dates: start: 20040101
  4. CEFATRIZINE [Concomitant]
     Indication: PRURITUS
     Dosage: 10MG PER DAY
     Route: 048
  5. RADIOTHERAPY [Concomitant]

REACTIONS (2)
  - DYSPNOEA [None]
  - LOCALISED OEDEMA [None]
